FAERS Safety Report 8758636 (Version 1)
Quarter: 2012Q4

REPORT INFORMATION
  Report Type: 
  Country: GB (occurrence: GB)
  Receive Date: 20120829
  Receipt Date: 20120829
  Transmission Date: 20130627
  Serious: Yes (Hospitalization, Other)
  Sender: FDA-Public Use
  Company Number: GB-UCBSA-064100

PATIENT
  Age: 52 Year
  Sex: Male
  Weight: 91.5 kg

DRUGS (10)
  1. KEPPRA [Suspect]
     Route: 048
     Dates: start: 2012, end: 20120807
  2. KEPPRA [Suspect]
     Route: 048
     Dates: start: 20120724, end: 2012
  3. CETIRIZINE [Concomitant]
  4. OMEPRAZOLE [Concomitant]
  5. DEXAMETHASONE [Concomitant]
  6. DICLOFENAC [Concomitant]
  7. HUMAN INSULATARD [Concomitant]
  8. MORPHINE [Concomitant]
  9. NOVORAPID [Concomitant]
  10. VEMURAFENIB [Concomitant]

REACTIONS (5)
  - Agitation [Unknown]
  - Aggression [Unknown]
  - Spinal cord compression [Unknown]
  - Psychotic disorder [Recovered/Resolved]
  - Mobility decreased [Unknown]
